FAERS Safety Report 4492847-0 (Version None)
Quarter: 2004Q4

REPORT INFORMATION
  Report Type: 
  Country: None (occurrence: None)
  Receive Date: 20041102
  Receipt Date: 20041102
  Transmission Date: 20050328
  Serious: No
  Sender: FDA-Public Use
  Company Number: None

PATIENT
  Age: 33 Year
  Sex: Male

DRUGS (6)
  1. ARIPIPRAZOLE 30 MG [Suspect]
     Dosage: 30 MG QD ORAL
     Route: 048
  2. DIPHENHYDRAMINE [Concomitant]
  3. FLUPHENAZINE [Concomitant]
  4. RANITIDINE [Concomitant]
  5. LORAZEPAM [Concomitant]
  6. ESCITALOPRAM OXALATE [Concomitant]

REACTIONS (1)
  - BLOOD CREATINE PHOSPHOKINASE INCREASED [None]
